FAERS Safety Report 7648964-7 (Version None)
Quarter: 2011Q3

REPORT INFORMATION
  Report Type: 
  Country: None (occurrence: None)
  Receive Date: 20110802
  Receipt Date: 20110722
  Transmission Date: 20111222
  Serious: Yes (Disabling)
  Sender: FDA-Public Use
  Company Number: GB-AMGEN-GBRSP2011025657

PATIENT
  Age: 62 Year
  Sex: Female

DRUGS (6)
  1. ENBREL [Suspect]
     Indication: RHEUMATOID ARTHRITIS
     Dosage: 50 MG, WEEKLY
     Dates: start: 20110101, end: 20110519
  2. AMITRIPTYLINE HCL [Concomitant]
     Dosage: 5 MG, UNK
     Route: 048
     Dates: start: 20070322
  3. LEVOTHYROXINE SODIUM [Concomitant]
     Dosage: 100 UG, UNK
     Route: 048
     Dates: start: 20040101
  4. ESOMEPRAZOLE MAGNESIUM [Concomitant]
     Dosage: 40 MG, UNK
     Route: 048
     Dates: start: 20100513
  5. ACETAMINOPHEN [Concomitant]
     Dosage: 500 MG, 1-2 TABLETS 4X/DAY
     Route: 048
  6. TRAMADOL HCL [Concomitant]
     Indication: PAIN
     Dosage: 50 MG, 1-2 TABLETS 4X/DAY
     Route: 048
     Dates: start: 20100624

REACTIONS (3)
  - HEADACHE [None]
  - NEURALGIA [None]
  - HEAD DISCOMFORT [None]
